FAERS Safety Report 9080124 (Version 1)
Quarter: 2013Q1

REPORT INFORMATION
  Report Type: Spontaneous
  Country: GB (occurrence: GB)
  Receive Date: 20130218
  Receipt Date: 20130218
  Transmission Date: 20140127
  Serious: Yes (Other)
  Sender: FDA-Public Use
  Company Number: PHHY2013GB014624

PATIENT
  Age: 59 Year
  Sex: Female
  Weight: 78.92 kg

DRUGS (5)
  1. CO-CODAMOL [Suspect]
     Indication: PAIN IN EXTREMITY
     Route: 048
     Dates: start: 20120201
  2. SINEMET [Concomitant]
  3. DIAZEPAM [Concomitant]
  4. EVOREL CONTI [Concomitant]
  5. PARACETAMOL [Concomitant]

REACTIONS (2)
  - Dyspnoea [Not Recovered/Not Resolved]
  - Withdrawal syndrome [Not Recovered/Not Resolved]
